FAERS Safety Report 10541567 (Version 4)
Quarter: 2014Q4

REPORT INFORMATION
  Report Type: Report from Study
  Country: US (occurrence: US)
  Receive Date: 20141024
  Receipt Date: 20141202
  Transmission Date: 20150529
  Serious: Yes (Hospitalization, Other)
  Sender: FDA-Public Use
  Company Number: US-SA-2014SA142584

PATIENT
  Age: 50 Year
  Sex: Female

DRUGS (1)
  1. AUBAGIO [Suspect]
     Active Substance: TERIFLUNOMIDE
     Indication: MULTIPLE SCLEROSIS
     Route: 048
     Dates: start: 20141010

REACTIONS (17)
  - Alanine aminotransferase increased [Recovering/Resolving]
  - Diarrhoea [Recovered/Resolved]
  - Blood pressure increased [Unknown]
  - Cognitive disorder [Unknown]
  - Memory impairment [Unknown]
  - Abdominal distension [Unknown]
  - Headache [Unknown]
  - Confusional state [Unknown]
  - Incontinence [Recovering/Resolving]
  - Chills [Unknown]
  - Vomiting [Recovered/Resolved]
  - Faeces soft [Unknown]
  - Chromaturia [Unknown]
  - Muscle spasms [Unknown]
  - Urinary tract infection [Recovering/Resolving]
  - Hyperhidrosis [Unknown]
  - Nausea [Recovered/Resolved]

NARRATIVE: CASE EVENT DATE: 201410
